FAERS Safety Report 9360993 (Version 3)
Quarter: 2013Q3

REPORT INFORMATION
  Report Type: Spontaneous
  Country: US (occurrence: US)
  Receive Date: 20130621
  Receipt Date: 20130704
  Transmission Date: 20140515
  Serious: Yes (Hospitalization, Other)
  Sender: FDA-Public Use
  Company Number: US-PFIZER INC-2013182147

PATIENT
  Age: 53 Year
  Sex: Female

DRUGS (17)
  1. AZITHROMYCIN [Suspect]
     Indication: LUNG INFECTION
     Dosage: 500 MG, 1 DF EVERY MON, WED, AND FRI
     Dates: start: 201306
  2. ETHAMBUTOL [Suspect]
     Dosage: 1400 MG, 1X/DAY EVERY MON, WED, AND FRI
     Dates: start: 201306
  3. ERYTHROMYCIN [Suspect]
     Indication: LUNG INFECTION
     Dosage: UNK
  4. RIFAMPICIN [Suspect]
     Indication: LUNG INFECTION
     Dosage: UNK
     Dates: start: 201306
  5. ALPHA-1-ANTITRYPSIN [Suspect]
     Indication: PRODUCT USED FOR UNKNOWN INDICATION
     Dosage: 1 IN 2 WK
     Route: 042
  6. LEVOTHYROXINE [Concomitant]
     Indication: THYROID DISORDER
     Dosage: 75 UG, 1X/DAY
  7. PRAVASTATIN [Concomitant]
     Indication: PRODUCT USED FOR UNKNOWN INDICATION
     Dosage: 20 MG, 1X/DAY
     Route: 048
  8. MIRTAZAPINE [Concomitant]
     Indication: DECREASED APPETITE
     Dosage: 0.25 DF, 1X/DAY
     Route: 048
  9. VESICARE [Concomitant]
     Indication: URINARY INCONTINENCE
     Dosage: 1 DF, 1X/DAY
     Route: 048
  10. ALPRAZOLAM [Concomitant]
     Indication: PANIC ATTACK
     Dosage: 1 IN 1 AS REQUIRED
     Route: 048
  11. VITAMIN D [Concomitant]
     Indication: PRODUCT USED FOR UNKNOWN INDICATION
     Dosage: 1 DF, 1X/DAY
     Route: 048
  12. CALCIUM [Concomitant]
     Indication: PRODUCT USED FOR UNKNOWN INDICATION
     Dosage: 1 DF, 2X/DAY
     Route: 048
  13. MAGNESIUM [Concomitant]
     Indication: PRODUCT USED FOR UNKNOWN INDICATION
     Dosage: 1 DF, 2X/DAY
     Route: 048
  14. MUCINEX [Concomitant]
     Indication: PRODUCT USED FOR UNKNOWN INDICATION
     Dosage: UNK
  15. PROBIOTICS [Concomitant]
     Indication: PRODUCT USED FOR UNKNOWN INDICATION
     Dosage: 1 DF, 1X/DAY
  16. SPIRIVA [Concomitant]
     Indication: PRODUCT USED FOR UNKNOWN INDICATION
  17. ADVAIR [Concomitant]
     Indication: PRODUCT USED FOR UNKNOWN INDICATION

REACTIONS (5)
  - Diaphragmatic injury [Recovered/Resolved]
  - Dyspnoea [Recovered/Resolved]
  - Chromaturia [Recovering/Resolving]
  - Lung infection [Recovering/Resolving]
  - Pulmonary mass [Not Recovered/Not Resolved]
